FAERS Safety Report 21113428 (Version 1)
Quarter: 2022Q3

REPORT INFORMATION
  Report Type: Spontaneous
  Country: US (occurrence: US)
  Receive Date: 20220721
  Receipt Date: 20220721
  Transmission Date: 20221026
  Serious: Yes (Hospitalization, Other)
  Sender: FDA-Public Use
  Company Number: US-009507513-2207USA005307

PATIENT
  Sex: Female

DRUGS (3)
  1. KEYTRUDA [Suspect]
     Active Substance: PEMBROLIZUMAB
  2. PACLITAXEL [Suspect]
     Active Substance: PACLITAXEL
  3. CARBOPLATIN [Suspect]
     Active Substance: CARBOPLATIN

REACTIONS (5)
  - Necrotising fasciitis [Unknown]
  - Neuropathy peripheral [Unknown]
  - Neutropenia [Unknown]
  - Blood lactic acid [Unknown]
  - Colitis [Unknown]
